FAERS Safety Report 23490382 (Version 1)
Quarter: 2024Q1

REPORT INFORMATION
  Report Type: Report from Study
  Country: US (occurrence: US)
  Receive Date: 20240206
  Receipt Date: 20240206
  Transmission Date: 20240410
  Serious: Yes (Hospitalization, Other)
  Sender: FDA-Public Use
  Company Number: US-ABBVIE-5611533

PATIENT
  Age: 84 Year
  Sex: Male
  Weight: 72 kg

DRUGS (2)
  1. HUMIRA [Suspect]
     Active Substance: ADALIMUMAB
     Indication: Colitis ulcerative
     Dosage: FORM STRENGTH: 40 MILLIGRAM?CITRATE FREE?LAST ADMIN DATE: 2023
     Route: 058
     Dates: start: 202304
  2. HUMIRA [Suspect]
     Active Substance: ADALIMUMAB
     Dosage: FORM STRENGTH: 40 MILLIGRAM?CITRATE FREE
     Route: 058
     Dates: start: 20230519, end: 20231223

REACTIONS (6)
  - Asthenia [Recovering/Resolving]
  - Cystitis [Recovering/Resolving]
  - Micturition urgency [Recovering/Resolving]
  - Dehydration [Recovering/Resolving]
  - White blood cell count increased [Recovering/Resolving]
  - Lipid metabolism disorder [Unknown]

NARRATIVE: CASE EVENT DATE: 20231001
